FAERS Safety Report 14342959 (Version 4)
Quarter: 2018Q4

REPORT INFORMATION
  Report Type: Report from Study
  Country: TW (occurrence: TW)
  Receive Date: 20180102
  Receipt Date: 20181010
  Transmission Date: 20190204
  Serious: Yes (Life-Threatening, Hospitalization, Other)
  Sender: FDA-Public Use
  Company Number: TW-PFIZER INC-2017552008

PATIENT
  Age: 63 Year
  Sex: Female

DRUGS (1)
  1. HEPARIN SODIUM. [Suspect]
     Active Substance: HEPARIN SODIUM
     Dosage: UNK

REACTIONS (3)
  - Subclavian vein thrombosis [Unknown]
  - Jugular vein thrombosis [Unknown]
  - Heparin-induced thrombocytopenia [Unknown]
